FAERS Safety Report 8459845-3 (Version None)
Quarter: 2012Q2

REPORT INFORMATION
  Report Type: 
  Country: None (occurrence: None)
  Receive Date: 20120622
  Receipt Date: 20120614
  Transmission Date: 20120825
  Serious: Yes (Other)
  Sender: FDA-Public Use
  Company Number: PHHY2012FI040586

PATIENT

DRUGS (1)
  1. CLOZAPINE [Suspect]
     Indication: SCHIZOPHRENIA
     Dosage: 800 MG, DAILY
     Route: 048
     Dates: start: 19990101

REACTIONS (4)
  - RESPIRATORY GAS EXCHANGE DISORDER [None]
  - HAEMOGLOBIN INCREASED [None]
  - ELECTROCARDIOGRAM REPOLARISATION ABNORMALITY [None]
  - ELECTROCARDIOGRAM T WAVE ABNORMAL [None]
